FAERS Safety Report 19693744 (Version 1)
Quarter: 2021Q3

REPORT INFORMATION
  Report Type: Spontaneous
  Country: JP (occurrence: JP)
  Receive Date: 20210813
  Receipt Date: 20210813
  Transmission Date: 20211014
  Serious: Yes (Hospitalization)
  Sender: FDA-Public Use
  Company Number: JP-009507513-2107JPN000390J

PATIENT
  Age: 8 Decade

DRUGS (1)
  1. KEYTRUDA [Suspect]
     Active Substance: PEMBROLIZUMAB
     Indication: BILE DUCT CANCER STAGE IV
     Dosage: 200 MILLIGRAM, Q3W
     Route: 041

REACTIONS (3)
  - Hepatic enzyme increased [Unknown]
  - Infusion related reaction [Unknown]
  - Pyrexia [Unknown]
